FAERS Safety Report 18469178 (Version 1)
Quarter: 2020Q4

REPORT INFORMATION
  Report Type: Spontaneous
  Country: US (occurrence: US)
  Receive Date: 20201105
  Receipt Date: 20201105
  Transmission Date: 20210114
  Serious: Yes (Death)
  Sender: FDA-Public Use
  Company Number: US-ASTRAZENECA-2020SF44584

PATIENT
  Age: 72 Year
  Sex: Female

DRUGS (10)
  1. SEROQUEL [Suspect]
     Active Substance: QUETIAPINE FUMARATE
     Indication: PRODUCT USED FOR UNKNOWN INDICATION
     Route: 048
     Dates: start: 201711
  2. DONEPEZIL. [Concomitant]
     Active Substance: DONEPEZIL
  3. VITAMIN B12 [Concomitant]
     Active Substance: CYANOCOBALAMIN
  4. ALPRAZOLAM. [Concomitant]
     Active Substance: ALPRAZOLAM
  5. METOPROLOL. [Suspect]
     Active Substance: METOPROLOL
     Route: 065
  6. ATIVAN [Concomitant]
     Active Substance: LORAZEPAM
  7. NUEDEXTA [Suspect]
     Active Substance: DEXTROMETHORPHAN HYDROBROMIDE\QUINIDINE SULFATE
     Indication: AFFECT LABILITY
     Dosage: 20/10 MG
     Route: 065
     Dates: start: 20171121
  8. ASPIRIN. [Concomitant]
     Active Substance: ASPIRIN
     Dosage: 81 MG
  9. ESCITALOPRAM [Concomitant]
     Active Substance: ESCITALOPRAM OXALATE
  10. MEMANTINE. [Concomitant]
     Active Substance: MEMANTINE

REACTIONS (4)
  - Condition aggravated [Unknown]
  - Drug ineffective [Unknown]
  - Death [Fatal]
  - Aggression [Unknown]

NARRATIVE: CASE EVENT DATE: 20171207
